FAERS Safety Report 22318074 (Version 3)
Quarter: 2023Q2

REPORT INFORMATION
  Report Type: Spontaneous
  Country: CN (occurrence: CN)
  Receive Date: 20230515
  Receipt Date: 20230606
  Transmission Date: 20230722
  Serious: Yes (Hospitalization)
  Sender: FDA-Public Use
  Company Number: CN-NOVOPROD-1062364

PATIENT
  Age: 53 Year
  Sex: Female

DRUGS (5)
  1. LEVEMIR [Suspect]
     Active Substance: INSULIN DETEMIR
     Indication: Type 2 diabetes mellitus
     Dosage: 6 IU, QD(IN THE EVENING)
     Dates: start: 2019
  2. METFORMIN [Concomitant]
     Active Substance: METFORMIN HYDROCHLORIDE
     Indication: Type 2 diabetes mellitus
     Dosage: UNK
     Route: 048
     Dates: start: 2013
  3. REPAGLINIDE [Concomitant]
     Active Substance: REPAGLINIDE
     Dosage: 1 MG
     Route: 048
  4. REPAGLINIDE [Concomitant]
     Active Substance: REPAGLINIDE
     Dosage: 2 DF, TID
     Route: 048
  5. REPAGLINIDE [Concomitant]
     Active Substance: REPAGLINIDE
     Indication: Type 2 diabetes mellitus
     Dosage: 0.5 MG
     Route: 048

REACTIONS (3)
  - Blood glucose increased [Recovered/Resolved]
  - Weight decreased [Recovered/Resolved]
  - Diabetes mellitus inadequate control [Unknown]

NARRATIVE: CASE EVENT DATE: 20220101
